FAERS Safety Report 5852624-2 (Version None)
Quarter: 2008Q3

REPORT INFORMATION
  Report Type: 
  Country: None (occurrence: None)
  Receive Date: 20080821
  Receipt Date: 20080812
  Transmission Date: 20090109
  Serious: Yes (Congenital Anomaly)
  Sender: FDA-Public Use
  Company Number: A0743634A

PATIENT

DRUGS (1)
  1. VALTREX [Suspect]
     Indication: GENITAL HERPES

REACTIONS (3)
  - CONGENITAL HEPATOBILIARY ANOMALY [None]
  - DRUG EXPOSURE DURING PREGNANCY [None]
  - VENOUS INJURY [None]
